FAERS Safety Report 13172540 (Version 3)
Quarter: 2017Q2

REPORT INFORMATION
  Report Type: Report from Study
  Country: US (occurrence: US)
  Receive Date: 20170131
  Receipt Date: 20170609
  Transmission Date: 20170830
  Serious: Yes (Hospitalization)
  Sender: FDA-Public Use
  Company Number: US-ACTELION-A-NJ2015-126361

PATIENT
  Age: 66 Year
  Sex: Female
  Weight: 45.35 kg

DRUGS (3)
  1. LETAIRIS [Concomitant]
     Active Substance: AMBRISENTAN
  2. VELETRI [Suspect]
     Active Substance: EPOPROSTENOL
     Indication: PULMONARY ARTERIAL HYPERTENSION
     Dosage: 100 NG/KG, PER MIN
     Route: 042
     Dates: start: 20110427
  3. ADCIRCA [Concomitant]
     Active Substance: TADALAFIL

REACTIONS (21)
  - Urinary tract infection [Unknown]
  - Weight decreased [Unknown]
  - Device dislocation [Unknown]
  - Palpitations [Unknown]
  - Chest discomfort [Unknown]
  - Nausea [Unknown]
  - Rash [Unknown]
  - Pharyngitis streptococcal [Unknown]
  - Pruritus [Unknown]
  - Hypertension [Unknown]
  - Device breakage [Unknown]
  - Device occlusion [Unknown]
  - Vomiting [Unknown]
  - Dyspnoea exertional [Unknown]
  - Device leakage [Unknown]
  - Diarrhoea [Unknown]
  - Pain in jaw [Unknown]
  - Decreased appetite [Unknown]
  - Catheter management [Unknown]
  - Device connection issue [Unknown]
  - Pain [Unknown]

NARRATIVE: CASE EVENT DATE: 20150930
